FAERS Safety Report 18658289 (Version 1)
Quarter: 2020Q4

REPORT INFORMATION
  Report Type: Spontaneous
  Country: GB (occurrence: GB)
  Receive Date: 20201223
  Receipt Date: 20201223
  Transmission Date: 20210114
  Serious: Yes (Life-Threatening, Other)
  Sender: FDA-Public Use
  Company Number: GB-TEVA-2020-GB-1861613

PATIENT
  Age: 20 Year
  Sex: Female
  Weight: 50 kg

DRUGS (14)
  1. BECLOMETASONE DIPROPIONATE [Concomitant]
     Active Substance: BECLOMETHASONE DIPROPIONATE
  2. PREDNISOLONE. [Concomitant]
     Active Substance: PREDNISOLONE
  3. SYMBICORT [Concomitant]
     Active Substance: BUDESONIDE\FORMOTEROL FUMARATE DIHYDRATE
  4. JOINTACE OMEGA 3 [Concomitant]
  5. OXITRIPTAN [Concomitant]
     Active Substance: OXITRIPTAN
     Dosage: HOLLAND AND BARRETT
  6. GLUCOSAMINE [Concomitant]
     Active Substance: GLUCOSAMINE
  7. RIGEVIDON [Concomitant]
  8. FOSTAIR [Concomitant]
     Active Substance: BECLOMETHASONE\FORMOTEROL
  9. CREATINE MONOHYDRATE [Concomitant]
     Active Substance: CREATINE MONOHYDRATE
  10. NEXPLANON [Concomitant]
     Active Substance: ETONOGESTREL
  11. ACCORD HEALTHCARE MONTELUKAST [Concomitant]
     Active Substance: MONTELUKAST\MONTELUKAST SODIUM
  12. CHONDROITIN SULFATE [Concomitant]
     Active Substance: CHONDROITIN SULFATE (BOVINE)
  13. SALBUTAMOL SULFATE [Suspect]
     Active Substance: ALBUTEROL SULFATE
     Indication: ASTHMA
     Dosage: 100 MCG
     Route: 055
     Dates: start: 20191112, end: 20201202
  14. CETIRIZINE DIHYDROCHLORIDE [Concomitant]
     Active Substance: CETIRIZINE HYDROCHLORIDE

REACTIONS (7)
  - Syncope [Recovered/Resolved]
  - Bronchospasm paradoxical [Recovered/Resolved with Sequelae]
  - Tremor [Recovered/Resolved with Sequelae]
  - Nausea [Recovered/Resolved]
  - Vomiting [Recovered/Resolved]
  - Asthma [Unknown]
  - Muscle spasms [Recovered/Resolved with Sequelae]
